FAERS Safety Report 6988436-6 (Version None)
Quarter: 2010Q3

REPORT INFORMATION
  Report Type: 
  Country: None (occurrence: None)
  Receive Date: 20100827
  Receipt Date: 20091120
  Transmission Date: 20110219
  Serious: Yes (Other)
  Sender: FDA-Public Use
  Company Number: 2009301436

PATIENT

DRUGS (1)
  1. VFEND [Suspect]

REACTIONS (1)
  - HYPOCALCAEMIA [None]
